FAERS Safety Report 8113375-7 (Version None)
Quarter: 2012Q1

REPORT INFORMATION
  Report Type: 
  Country: None (occurrence: None)
  Receive Date: 20120203
  Receipt Date: 20120201
  Transmission Date: 20120608
  Serious: Yes (Death)
  Sender: FDA-Public Use
  Company Number: PHHY2012JP008835

PATIENT
  Age: 40 Year
  Sex: Female

DRUGS (3)
  1. PAXIL [Concomitant]
     Route: 048
  2. VOLTAREN [Suspect]
     Indication: TOOTHACHE
     Dosage: 25 MG, PRN
     Route: 054
     Dates: start: 20120109
  3. LOXONIN [Concomitant]
     Route: 048

REACTIONS (1)
  - SHOCK [None]
